FAERS Safety Report 9068904 (Version 1)
Quarter: 2013Q1

REPORT INFORMATION
  Report Type: Spontaneous
  Country: US (occurrence: US)
  Receive Date: 20130128
  Receipt Date: 20130128
  Transmission Date: 20140127
  Serious: Yes (Other)
  Sender: FDA-Public Use
  Company Number: PHEH2013US002069

PATIENT
  Sex: Female

DRUGS (5)
  1. GILENYA [Suspect]
     Indication: MULTIPLE SCLEROSIS
     Dosage: 0.5 MG, QD
     Route: 048
     Dates: start: 20110907
  2. TIMOLOL [Concomitant]
  3. PROVIGIL [Concomitant]
  4. OXYBUTYNIN [Concomitant]
  5. TRIAMTEREEN/HYDROCHLOOTTHIAZIDE [Concomitant]

REACTIONS (2)
  - Intraocular pressure increased [Recovered/Resolved]
  - Panic attack [Recovered/Resolved]
